FAERS Safety Report 12206965 (Version 1)
Quarter: 2016Q1

REPORT INFORMATION
  Report Type: Spontaneous
  Country: US (occurrence: None)
  Receive Date: 20160323
  Receipt Date: 20160323
  Transmission Date: 20160526
  Serious: Yes (Life-Threatening, Hospitalization)
  Sender: FDA-Public Use
  Company Number: None

PATIENT
  Age: 54 Year
  Sex: Male
  Weight: 136 kg

DRUGS (5)
  1. MULTIVITAMIN [Concomitant]
     Active Substance: VITAMINS
  2. FISHOIL [Concomitant]
  3. ASPIRIN. [Concomitant]
     Active Substance: ASPIRIN
  4. HEPARIN [Concomitant]
     Active Substance: HEPARIN SODIUM
  5. TIROFIBAN 5MG PER 100ML MEDICURE [Suspect]
     Active Substance: TIROFIBAN
     Indication: CATHETERISATION CARDIAC
     Dates: start: 20160108, end: 20160108

REACTIONS (2)
  - Thrombosis [None]
  - Condition aggravated [None]

NARRATIVE: CASE EVENT DATE: 20160108
